FAERS Safety Report 4456690-0 (Version None)
Quarter: 2004Q3

REPORT INFORMATION
  Report Type: 
  Country: None (occurrence: None)
  Receive Date: 20040923
  Receipt Date: 20040826
  Transmission Date: 20050211
  Serious: Yes (Hospitalization)
  Sender: FDA-Public Use
  Company Number: 200412770JP

PATIENT
  Age: 35 Year
  Sex: Male

DRUGS (7)
  1. KETEK [Suspect]
     Indication: LARYNGOPHARYNGITIS
     Route: 048
     Dates: start: 20040810, end: 20040810
  2. NICOLDA [Concomitant]
     Indication: LARYNGOPHARYNGITIS
     Dosage: DOSE: 3 CAPSULES/DAY
     Route: 048
     Dates: start: 20040806, end: 20040810
  3. NICOLDA [Concomitant]
     Indication: STOMATITIS
     Dosage: DOSE: 3 CAPSULES/DAY
     Route: 048
     Dates: start: 20040806, end: 20040810
  4. LORFENAMIN [Concomitant]
     Indication: LARYNGOPHARYNGITIS
     Dosage: DOSE: 3 TABLETS/DAY
     Route: 048
     Dates: start: 20040806, end: 20040810
  5. LORFENAMIN [Concomitant]
     Indication: STOMATITIS
     Dosage: DOSE: 3 TABLETS/DAY
     Route: 048
     Dates: start: 20040806, end: 20040810
  6. DEXALTIN [Concomitant]
     Indication: STOMATITIS
     Dosage: DOSE: AS NEEDED
     Dates: start: 20040806, end: 20040810
  7. LORFENAMIN [Concomitant]
     Dosage: DOSE: 3TABLEST/DAY
     Route: 048
     Dates: start: 20040810, end: 20040810

REACTIONS (7)
  - BLISTER [None]
  - DRUG HYPERSENSITIVITY [None]
  - GENERALISED ERYTHEMA [None]
  - GENERALISED OEDEMA [None]
  - ORAL PAIN [None]
  - SWELLING [None]
  - URTICARIA GENERALISED [None]
